FAERS Safety Report 24063200 (Version 1)
Quarter: 2024Q3

REPORT INFORMATION
  Report Type: Spontaneous
  Country: US (occurrence: US)
  Receive Date: 20240709
  Receipt Date: 20240709
  Transmission Date: 20241017
  Serious: No
  Sender: ROCHE
  Company Number: US-ROCHE-10000019152

PATIENT
  Sex: Male

DRUGS (17)
  1. XOLAIR [Suspect]
     Active Substance: OMALIZUMAB
     Indication: Asthma
     Route: 058
  2. XOLAIR [Suspect]
     Active Substance: OMALIZUMAB
  3. ALPRAZOLAM [Concomitant]
     Active Substance: ALPRAZOLAM
  4. AMOXICILLIN [Concomitant]
     Active Substance: AMOXICILLIN
  5. ASPIRIN [Concomitant]
     Active Substance: ASPIRIN
  6. ATORVASTATIN [Concomitant]
     Active Substance: ATORVASTATIN
  7. CETIRIZINE [Concomitant]
     Active Substance: CETIRIZINE HYDROCHLORIDE
  8. FAMOTIDINE [Concomitant]
     Active Substance: FAMOTIDINE
     Dosage: SUS 50MCG/AC
  9. FUROSEMIDE [Concomitant]
     Active Substance: FUROSEMIDE
  10. GABAPENTIN [Concomitant]
     Active Substance: GABAPENTIN
  11. LEVOTHYROXINE SODIUM [Concomitant]
     Active Substance: LEVOTHYROXINE SODIUM
  12. LISINOPRIL [Concomitant]
     Active Substance: LISINOPRIL
  13. METFORMIN [Concomitant]
     Active Substance: METFORMIN HYDROCHLORIDE
  14. METOPROLOL [Concomitant]
     Active Substance: METOPROLOL
  15. MONTELUKAST [Concomitant]
     Active Substance: MONTELUKAST SODIUM
  16. RIZATRIPTAN [Concomitant]
     Active Substance: RIZATRIPTAN
  17. TRELEGY ELLIPTA [Concomitant]
     Active Substance: FLUTICASONE FUROATE\UMECLIDINIUM BROMIDE\VILANTEROL TRIFENATATE

REACTIONS (1)
  - Dyspnoea [Not Recovered/Not Resolved]
